FAERS Safety Report 15940998 (Version 4)
Quarter: 2019Q1

REPORT INFORMATION
  Report Type: Spontaneous
  Country: US (occurrence: US)
  Receive Date: 20190208
  Receipt Date: 20190312
  Transmission Date: 20190417
  Serious: Yes (Hospitalization)
  Sender: FDA-Public Use
  Company Number: US-BIOGEN-2019BI00692101

PATIENT
  Sex: Male

DRUGS (1)
  1. TYSABRI [Suspect]
     Active Substance: NATALIZUMAB
     Indication: MULTIPLE SCLEROSIS
     Route: 050
     Dates: start: 20181210

REACTIONS (8)
  - Multiple sclerosis relapse [Unknown]
  - Irritability [Unknown]
  - Mobility decreased [Unknown]
  - Pneumonia [Unknown]
  - Infection [Unknown]
  - Crohn^s disease [Unknown]
  - Wound [Unknown]
  - Asthenia [Unknown]
